FAERS Safety Report 22154688 (Version 1)
Quarter: 2023Q1

REPORT INFORMATION
  Report Type: Spontaneous
  Country: CN (occurrence: CN)
  Receive Date: 20230330
  Receipt Date: 20230330
  Transmission Date: 20230417
  Serious: Yes (Hospitalization, Other)
  Sender: FDA-Public Use
  Company Number: None

PATIENT
  Age: 13 Year
  Sex: Male
  Weight: 67.5 kg

DRUGS (5)
  1. CYCLOPHOSPHAMIDE [Suspect]
     Active Substance: CYCLOPHOSPHAMIDE
     Indication: Acute lymphocytic leukaemia
     Dosage: 1.7 G, ONCE, QD, DILUTED WITH 250ML GLUCOSE AND SODIUM CHLORIDE(4: 1)
     Route: 041
     Dates: start: 20230210, end: 20230210
  2. DEXTROSE MONOHYDRATE\SODIUM CHLORIDE [Suspect]
     Active Substance: DEXTROSE MONOHYDRATE\SODIUM CHLORIDE
     Indication: Medication dilution
     Dosage: 250 ML, ONCE, QD, 4:1 RATIO DILUTED WITH 1.7 G CYCLOPHOSPHAMIDE
     Route: 041
     Dates: start: 20230210, end: 20230210
  3. DEXTROSE MONOHYDRATE\SODIUM CHLORIDE [Suspect]
     Active Substance: DEXTROSE MONOHYDRATE\SODIUM CHLORIDE
     Dosage: 100 ML, Q12H, BID, 4:1 RATIO DILUTED WITH 1.7 G CYTARABINE
     Route: 041
     Dates: start: 20230210, end: 20230213
  4. CYTARABINE [Suspect]
     Active Substance: CYTARABINE
     Indication: Acute lymphocytic leukaemia
     Dosage: 1.7 G, Q12H, BID, DILUTED WITH 100ML GLUCOSE AND SODIUM CHLORIDE(4: 1)
     Route: 041
     Dates: start: 20230210, end: 20230213
  5. MERCAPTOPURINE [Suspect]
     Active Substance: MERCAPTOPURINE
     Indication: Acute lymphocytic leukaemia
     Dosage: 85 MG, QN
     Route: 048
     Dates: start: 20230210, end: 20230213

REACTIONS (3)
  - Myelosuppression [Recovering/Resolving]
  - White blood cell count decreased [Recovering/Resolving]
  - Platelet count decreased [Recovering/Resolving]

NARRATIVE: CASE EVENT DATE: 20230217
